FAERS Safety Report 8299601-2 (Version None)
Quarter: 2012Q2

REPORT INFORMATION
  Report Type: 
  Country: None (occurrence: None)
  Receive Date: 20120419
  Receipt Date: 20120412
  Transmission Date: 20120825
  Serious: Yes (Hospitalization)
  Sender: FDA-Public Use
  Company Number: US-GLAXOSMITHKLINE-A0966792A

PATIENT
  Age: 39 Year
  Sex: Female
  Weight: 55 kg

DRUGS (10)
  1. IBUPROFEN [Concomitant]
  2. DIGOXIN [Concomitant]
  3. FLOLAN [Suspect]
     Indication: CONNECTIVE TISSUE DISORDER
     Dosage: 21NGKM SEE DOSAGE TEXT
     Route: 042
     Dates: start: 20100825
  4. REVATIO [Concomitant]
     Dosage: 40MG THREE TIMES PER DAY
  5. LISINOPRIL [Concomitant]
  6. PREDNISONE TAB [Concomitant]
  7. LASIX [Concomitant]
  8. MYCOPHENOLATE MOFETIL [Concomitant]
  9. POTASSIUM [Concomitant]
  10. DILAUDID [Concomitant]

REACTIONS (6)
  - BASEDOW'S DISEASE [None]
  - SYNCOPE [None]
  - NUCLEAR MAGNETIC RESONANCE IMAGING [None]
  - VOMITING [None]
  - BLOOD PRESSURE DECREASED [None]
  - WEIGHT DECREASED [None]
